FAERS Safety Report 6597916-7 (Version None)
Quarter: 2010Q1

REPORT INFORMATION
  Report Type: 
  Country: None (occurrence: None)
  Receive Date: 20100223
  Receipt Date: 20091215
  Transmission Date: 20100710
  Serious: No
  Sender: FDA-Public Use
  Company Number: US-ALLERGAN-0917203US

PATIENT
  Age: 55 Year
  Sex: Female

DRUGS (1)
  1. BOTOX [Suspect]
     Indication: MUSCLE SPASTICITY
     Dosage: 300 UNITS, SINGLE
     Route: 030
     Dates: start: 20091123, end: 20091123

REACTIONS (4)
  - ASTHENIA [None]
  - DECREASED APPETITE [None]
  - DIZZINESS [None]
  - INFLUENZA LIKE ILLNESS [None]
